FAERS Safety Report 13893759 (Version 1)
Quarter: 2017Q3

REPORT INFORMATION
  Report Type: Spontaneous
  Country: US (occurrence: US)
  Receive Date: 20170822
  Receipt Date: 20170822
  Transmission Date: 20171127
  Serious: Yes (Death, Other)
  Sender: FDA-Public Use
  Company Number: PHEH2017US026274

PATIENT
  Sex: Male

DRUGS (4)
  1. AMIODARONE ZYDUS [Suspect]
     Active Substance: AMIODARONE
     Indication: ATRIAL FIBRILLATION
     Route: 065
  2. AMIODARONE HYDROCHLORIDE. [Suspect]
     Active Substance: AMIODARONE HYDROCHLORIDE
     Indication: ATRIAL FIBRILLATION
     Dosage: 200 MG, UNK
     Route: 048
     Dates: start: 201508
  3. AMIODARONE TEVA [Suspect]
     Active Substance: AMIODARONE
     Indication: ATRIAL FIBRILLATION
     Route: 065
  4. AMIODARONE HYDROCHLORIDE. [Suspect]
     Active Substance: AMIODARONE HYDROCHLORIDE
     Indication: ATRIAL FIBRILLATION
     Route: 065

REACTIONS (16)
  - Traumatic lung injury [Fatal]
  - Dyspnoea [Fatal]
  - Gait disturbance [Unknown]
  - Jaundice [Fatal]
  - Contusion [Fatal]
  - Fatigue [Fatal]
  - Pulmonary embolism [Unknown]
  - Abdominal pain [Unknown]
  - Asthenia [Fatal]
  - Wheezing [Fatal]
  - Hepatic failure [Fatal]
  - Skin lesion [Fatal]
  - General physical health deterioration [Unknown]
  - Cough [Fatal]
  - Weight decreased [Unknown]
  - Product use in unapproved indication [Unknown]

NARRATIVE: CASE EVENT DATE: 201605
